FAERS Safety Report 7356645-2 (Version None)
Quarter: 2011Q1

REPORT INFORMATION
  Report Type: 
  Country: None (occurrence: None)
  Receive Date: 20110316
  Receipt Date: 20110307
  Transmission Date: 20110831
  Serious: Yes (Other)
  Sender: FDA-Public Use
  Company Number: US-AMGEN-USASP2011012764

PATIENT
  Age: 56 Year
  Sex: Female

DRUGS (2)
  1. ENBREL [Suspect]
     Indication: RHEUMATOID ARTHRITIS
     Dosage: 50 MG, QWK
     Dates: start: 20110211
  2. ENBREL [Suspect]
     Indication: DIABETES MELLITUS

REACTIONS (8)
  - HYPERHIDROSIS [None]
  - INJECTION SITE WARMTH [None]
  - DIZZINESS [None]
  - INJECTION SITE PAIN [None]
  - INJECTION SITE PRURITUS [None]
  - INJECTION SITE ERYTHEMA [None]
  - SYNCOPE [None]
  - BLOOD GLUCOSE ABNORMAL [None]
